FAERS Safety Report 20334612 (Version 1)
Quarter: 2022Q1

REPORT INFORMATION
  Report Type: Other
  Country: RO (occurrence: RO)
  Receive Date: 20220114
  Receipt Date: 20220114
  Transmission Date: 20220423
  Serious: Yes (Hospitalization)
  Sender: FDA-Public Use
  Company Number: RO-002147023-NVSC2021RO184101

PATIENT
  Age: 56 Year
  Sex: Female
  Weight: 62 kg

DRUGS (1)
  1. XOLAIR [Suspect]
     Active Substance: OMALIZUMAB
     Indication: Product used for unknown indication
     Dosage: 150 MG
     Route: 065

REACTIONS (12)
  - Back pain [Not Recovered/Not Resolved]
  - Spinal stenosis [Unknown]
  - Dysphonia [Unknown]
  - Intervertebral disc protrusion [Unknown]
  - Pain [Unknown]
  - Throat tightness [Unknown]
  - Blood cholesterol increased [Unknown]
  - Asthma [Unknown]
  - Confusional state [Unknown]
  - Drug ineffective [Unknown]
  - Hypersensitivity [Unknown]
  - Pruritus [Unknown]
